FAERS Safety Report 7984678-1 (Version None)
Quarter: 2011Q4

REPORT INFORMATION
  Report Type: 
  Country: None (occurrence: None)
  Receive Date: 20111216
  Receipt Date: 20111123
  Transmission Date: 20120403
  Serious: No
  Sender: FDA-Public Use
  Company Number: US-GLAXOSMITHKLINE-A0939557A

PATIENT
  Age: 75 Year
  Sex: Female
  Weight: 45.9 kg

DRUGS (6)
  1. PREDNISONE [Concomitant]
  2. LIPITOR [Concomitant]
  3. PROMACTA [Suspect]
     Indication: PRODUCT USED FOR UNKNOWN INDICATION
     Dosage: 75MG PER DAY
     Route: 048
     Dates: start: 20110601, end: 20110801
  4. FISH OIL [Concomitant]
  5. CORTICOSTEROIDS [Concomitant]
     Indication: IDIOPATHIC THROMBOCYTOPENIC PURPURA
     Dates: start: 20110427, end: 20110613
  6. SOTALOL HCL [Concomitant]

REACTIONS (4)
  - HYPOAESTHESIA [None]
  - DRUG INEFFECTIVE [None]
  - PAIN IN EXTREMITY [None]
  - GAIT DISTURBANCE [None]
